FAERS Safety Report 15138431 (Version 1)
Quarter: 2018Q3

REPORT INFORMATION
  Report Type: Spontaneous
  Country: CA (occurrence: CA)
  Receive Date: 20180713
  Receipt Date: 20180713
  Transmission Date: 20181010
  Serious: Yes (Other)
  Sender: FDA-Public Use
  Company Number: CA-ORION CORPORATION ORION PHARMA-TREX2018-1999

PATIENT
  Age: 52 Year
  Sex: Female

DRUGS (9)
  1. METHOTREXATE (TRADE NAME UNKNOWN) [Suspect]
     Active Substance: METHOTREXATE
     Route: 065
  2. BUSCOPAN [Concomitant]
     Active Substance: BUTYLSCOPOLAMINE BROMIDE
     Route: 065
  3. SYNTHROID [Concomitant]
     Active Substance: LEVOTHYROXINE SODIUM
     Route: 065
  4. BISOPROLOL [Concomitant]
     Active Substance: BISOPROLOL
     Route: 065
  5. PANTOPRAZOLE [Concomitant]
     Active Substance: PANTOPRAZOLE
     Route: 065
  6. VITAMIN D [Concomitant]
     Active Substance: CHOLECALCIFEROL
     Route: 065
  7. METHOTREXATE (TRADE NAME UNKNOWN) [Suspect]
     Active Substance: METHOTREXATE
     Indication: COLITIS ULCERATIVE
     Route: 065
     Dates: start: 201712, end: 201802
  8. AMITRIPTYLINE [Concomitant]
     Active Substance: AMITRIPTYLINE
     Route: 065
  9. TRIFLUOPERAZINE [Concomitant]
     Active Substance: TRIFLUOPERAZINE\TRIFLUOPERAZINE HYDROCHLORIDE
     Route: 065

REACTIONS (3)
  - Rectal haemorrhage [Unknown]
  - Gastrointestinal motility disorder [Unknown]
  - Drug ineffective for unapproved indication [Unknown]
